FAERS Safety Report 7267025-2 (Version None)
Quarter: 2011Q1

REPORT INFORMATION
  Report Type: 
  Country: None (occurrence: None)
  Receive Date: 20110201
  Receipt Date: 20110119
  Transmission Date: 20110831
  Serious: Yes (Hospitalization, Other)
  Sender: FDA-Public Use
  Company Number: US-BAYER-201030148NA

PATIENT
  Sex: Male
  Weight: 117 kg

DRUGS (2)
  1. PERCOCET [Concomitant]
  2. AVELOX [Suspect]
     Indication: STAPHYLOCOCCAL INFECTION
     Route: 048
     Dates: start: 20100727, end: 20100728

REACTIONS (1)
  - RENAL FAILURE [None]
